FAERS Safety Report 13247730 (Version 4)
Quarter: 2020Q3

REPORT INFORMATION
  Report Type: Report from Study
  Country: None (occurrence: FI)
  Receive Date: 20170217
  Receipt Date: 20200929
  Transmission Date: 20201102
  Serious: Yes (Hospitalization)
  Sender: FDA-Public Use
  Company Number: FI-ABBVIE-17P-055-1874113-00

PATIENT
  Age: 77 Year
  Sex: Female
  Weight: 42 kg

DRUGS (18)
  1. DUODOPA [Suspect]
     Active Substance: CARBIDOPA\LEVODOPA
     Indication: PARKINSON^S DISEASE
     Dosage: CD 5.4; MD 10.0 ML ED 0.1 APPROXIMATELY ONCE A WEEK
     Route: 050
     Dates: start: 20150915
  2. DUODOPA [Suspect]
     Active Substance: CARBIDOPA\LEVODOPA
     Dosage: CONTINUOUS INFUSION 6.2 ML/H, 16H TREATMENT
     Route: 050
     Dates: start: 2019, end: 2019
  3. DUODOPA [Suspect]
     Active Substance: CARBIDOPA\LEVODOPA
     Dosage: MD: 10 ML, CONTINUOUS INFUSION 6.2 ML/H, EXTRA DOSE 2 ML, 16H TREATMENT
     Route: 050
     Dates: start: 2015, end: 201907
  4. DUODOPA [Suspect]
     Active Substance: CARBIDOPA\LEVODOPA
     Dosage: CONTINUOUS INFUSION 6.1 ML/H, 16H TREATMENT
     Route: 050
     Dates: start: 2019, end: 2019
  5. DUODOPA [Suspect]
     Active Substance: CARBIDOPA\LEVODOPA
     Dosage: CURRENT DOSAGE: MD 5 ML; CD 5.7 ML/H, 16 H TREATMENT
     Route: 050
     Dates: start: 2019
  6. DUODOPA [Suspect]
     Active Substance: CARBIDOPA\LEVODOPA
     Dosage: CD 5.0 ML/H
     Route: 050
  7. DUODOPA [Suspect]
     Active Substance: CARBIDOPA\LEVODOPA
     Dosage: CD 5.4; MD 10.0; ED 0.1 APPROXIMATELY ONCE A WEEK
     Route: 050
  8. DUODOPA [Suspect]
     Active Substance: CARBIDOPA\LEVODOPA
     Dosage: CD 5.5
     Route: 050
  9. DUODOPA [Suspect]
     Active Substance: CARBIDOPA\LEVODOPA
     Dosage: CD 5.6 ML/H
     Route: 050
  10. DUODOPA [Suspect]
     Active Substance: CARBIDOPA\LEVODOPA
     Dosage: MD: 10 ML, CONTINUOUS INFUSION 6.2 ML/H, 16H TREATMENT
     Route: 050
     Dates: start: 201907, end: 2019
  11. DUODOPA [Suspect]
     Active Substance: CARBIDOPA\LEVODOPA
     Dosage: CONTINUOUS INFUSION 5.8 ML/H, 16H TREATMENT
     Route: 050
     Dates: start: 2019, end: 2019
  12. MADOPAR QUICK [Concomitant]
     Indication: PRODUCT USED FOR UNKNOWN INDICATION
     Dosage: INTERMITTENTLY
  13. DUODOPA [Suspect]
     Active Substance: CARBIDOPA\LEVODOPA
     Dosage: CD 3.2 ML/H
     Route: 050
     Dates: start: 20150915
  14. DUODOPA [Suspect]
     Active Substance: CARBIDOPA\LEVODOPA
     Dosage: CD 5.4; MD 10.0; ED 0.1 APPROXIMATELY ONCE A WEEK
     Route: 050
  15. DUODOPA [Suspect]
     Active Substance: CARBIDOPA\LEVODOPA
     Dosage: CONTINUOUS INFUSION 6.0 ML/H, 16H TREATMENT
     Route: 050
     Dates: start: 2019, end: 2019
  16. DUODOPA [Suspect]
     Active Substance: CARBIDOPA\LEVODOPA
     Dosage: CD 5.5 ML/H
     Route: 050
  17. DUODOPA [Suspect]
     Active Substance: CARBIDOPA\LEVODOPA
     Dosage: CONTINUOUS INFUSION 5.9 ML/H, 16H TREATMENT
     Route: 050
     Dates: start: 2019, end: 2019
  18. DUODOPA [Suspect]
     Active Substance: CARBIDOPA\LEVODOPA
     Dosage: CONTINUOUS INFUSION 5.8 ML/H, 16H TREATMENT
     Route: 050
     Dates: start: 2019, end: 2019

REACTIONS (12)
  - Parkinson^s disease [Unknown]
  - Mobility decreased [Unknown]
  - Device alarm issue [Recovered/Resolved]
  - Weight decreased [Recovering/Resolving]
  - Decreased appetite [Recovered/Resolved]
  - Parkinson^s disease [Recovered/Resolved]
  - Confusional state [Recovered/Resolved]
  - Blood potassium decreased [Recovered/Resolved]
  - Disorientation [Recovered/Resolved]
  - Nausea [Recovered/Resolved]
  - Dyskinesia [Recovered/Resolved]
  - Gait inability [Recovered/Resolved]

NARRATIVE: CASE EVENT DATE: 2016
